FAERS Safety Report 4544615-9 (Version None)
Quarter: 2005Q1

REPORT INFORMATION
  Report Type: 
  Country: None (occurrence: None)
  Receive Date: 20050105
  Receipt Date: 20041229
  Transmission Date: 20050727
  Serious: Yes (Other)
  Sender: FDA-Public Use
  Company Number: JP-BRISTOL-MYERS SQUIBB COMPANY-12808382

PATIENT
  Age: 33 Year
  Sex: Male

DRUGS (3)
  1. BLEOMYCIN [Suspect]
     Indication: TESTIS CANCER
     Route: 042
     Dates: start: 20041110, end: 20041110
  2. RANDA [Concomitant]
     Indication: TESTIS CANCER
     Route: 042
  3. LASTET [Concomitant]
     Indication: TESTIS CANCER
     Route: 042

REACTIONS (2)
  - MUSCULOSKELETAL STIFFNESS [None]
  - OBSTRUCTIVE AIRWAYS DISORDER [None]
